FAERS Safety Report 13749553 (Version 1)
Quarter: 2017Q3

REPORT INFORMATION
  Report Type: Spontaneous
  Country: BR (occurrence: BR)
  Receive Date: 20170713
  Receipt Date: 20170713
  Transmission Date: 20171127
  Serious: Yes (Other)
  Sender: FDA-Public Use
  Company Number: BR-PFIZER INC-2017300522

PATIENT
  Age: 70 Year
  Sex: Female

DRUGS (1)
  1. LYRICA [Suspect]
     Active Substance: PREGABALIN
     Indication: SPINAL COLUMN INJURY
     Dosage: UNK
     Dates: start: 2016

REACTIONS (2)
  - Pain [Unknown]
  - Intervertebral disc disorder [Unknown]
